FAERS Safety Report 5731192-X (Version None)
Quarter: 2008Q2

REPORT INFORMATION
  Report Type: 
  Country: None (occurrence: None)
  Receive Date: 20080507
  Receipt Date: 20080429
  Transmission Date: 20081010
  Serious: Yes (Hospitalization)
  Sender: FDA-Public Use
  Company Number: BR-BOEHRINGER INGELHEIM GMBH, GERMANY-2008-DE-02566GD

PATIENT
  Sex: Female

DRUGS (6)
  1. NEVIRAPINE [Suspect]
     Route: 064
  2. PREDNISONE TAB [Suspect]
     Route: 064
  3. ZIDOVUDINE [Suspect]
     Route: 064
  4. LAMIVUDINE [Suspect]
     Route: 064
  5. NELFINAVIR [Suspect]
     Indication: HIV INFECTION
     Route: 064
  6. DEXTROCHLORPHENIRAMINE [Suspect]
     Route: 064

REACTIONS (3)
  - CHORIORETINAL SCAR [None]
  - CONGENITAL TOXOPLASMOSIS [None]
  - DRUG EXPOSURE DURING PREGNANCY [None]
